FAERS Safety Report 5097612-1 (Version None)
Quarter: 2006Q3

REPORT INFORMATION
  Report Type: 
  Country: None (occurrence: None)
  Receive Date: 20060901
  Receipt Date: 20060822
  Transmission Date: 20061208
  Serious: Yes (Hospitalization, Other)
  Sender: FDA-Public Use
  Company Number: 2006101770

PATIENT
  Age: 16 Year
  Sex: Female
  Weight: 46 kg

DRUGS (1)
  1. VFEND [Suspect]
     Indication: SINUSITIS FUNGAL
     Dosage: SEE IMAGE
     Route: 042
     Dates: start: 20050101

REACTIONS (4)
  - BLOOD BILIRUBIN INCREASED [None]
  - LIVER FUNCTION TEST ABNORMAL [None]
  - MALABSORPTION [None]
  - PNEUMONIA [None]
